FAERS Safety Report 5872457-0 (Version None)
Quarter: 2008Q3

REPORT INFORMATION
  Report Type: 
  Country: None (occurrence: None)
  Receive Date: 20080905
  Receipt Date: 20080828
  Transmission Date: 20090109
  Serious: Yes (Other)
  Sender: FDA-Public Use
  Company Number: PHHY2008BR19528

PATIENT
  Age: 89 Year
  Sex: Male
  Weight: 60 kg

DRUGS (2)
  1. EXFORGE [Suspect]
     Indication: HYPERTENSION
     Dosage: 160/5 MG DAILY
     Route: 048
  2. STALEVO 100 [Concomitant]
     Dosage: 50 MG, UNK

REACTIONS (1)
  - PARKINSONISM [None]
